FAERS Safety Report 4490705-9 (Version None)
Quarter: 2004Q4

REPORT INFORMATION
  Report Type: 
  Country: None (occurrence: None)
  Receive Date: 20041102
  Receipt Date: 20040930
  Transmission Date: 20050328
  Serious: Yes (Other)
  Sender: FDA-Public Use
  Company Number: US-ROCHE-381860

PATIENT
  Age: 44 Year
  Sex: Female
  Weight: 76.7 kg

DRUGS (5)
  1. PEG-INTERFERON ALFA 2A (RO 25-8310) [Suspect]
     Route: 058
     Dates: start: 20040420, end: 20040803
  2. RIBAVIRIN [Suspect]
     Route: 048
     Dates: start: 20040420, end: 20040809
  3. PROZAC [Concomitant]
     Dates: start: 20040330
  4. PREMARIN [Concomitant]
  5. TYLENOL [Concomitant]
     Dates: start: 20040304

REACTIONS (6)
  - ATRIOVENTRICULAR BLOCK FIRST DEGREE [None]
  - BLOOD CREATINE PHOSPHOKINASE INCREASED [None]
  - CHEST DISCOMFORT [None]
  - DEHYDRATION [None]
  - HYPOKALAEMIA [None]
  - SINUS BRADYCARDIA [None]
